FAERS Safety Report 7170977-2 (Version None)
Quarter: 2010Q4

REPORT INFORMATION
  Report Type: 
  Country: None (occurrence: None)
  Receive Date: 20101217
  Receipt Date: 20101213
  Transmission Date: 20110411
  Serious: Yes (Death, Hospitalization)
  Sender: FDA-Public Use
  Company Number: FR-MERCK-1012FRA00072

PATIENT
  Age: 46 Year
  Sex: Male

DRUGS (9)
  1. ISENTRESS [Suspect]
     Indication: HIV INFECTION
     Route: 048
     Dates: start: 20100219, end: 20101128
  2. DARUNAVIR [Concomitant]
     Indication: HIV INFECTION
     Route: 048
  3. RITONAVIR [Concomitant]
     Indication: HIV INFECTION
     Route: 048
  4. SILDENAFIL CITRATE [Concomitant]
     Route: 065
  5. AMLODIPINE BESYLATE [Concomitant]
     Route: 048
  6. PROPRANOLOL HYDROCHLORIDE [Concomitant]
     Route: 065
  7. FUROSEMIDE [Concomitant]
     Route: 065
  8. ZOLPIDEM TARTRATE [Concomitant]
     Route: 065
  9. SILDENAFIL CITRATE [Concomitant]
     Indication: PULMONARY ARTERIAL HYPERTENSION
     Route: 065

REACTIONS (1)
  - CACHEXIA [None]
